FAERS Safety Report 20010910 (Version 1)
Quarter: 2021Q4

REPORT INFORMATION
  Report Type: Spontaneous
  Country: US (occurrence: US)
  Receive Date: 20211029
  Receipt Date: 20211029
  Transmission Date: 20220303
  Serious: Yes (Other)
  Sender: FDA-Public Use
  Company Number: None

PATIENT
  Age: 44 Year
  Sex: Male

DRUGS (1)
  1. BUPRENORPHINE\NALOXONE [Suspect]
     Active Substance: BUPRENORPHINE\NALOXONE
     Indication: Drug dependence
     Route: 060
     Dates: start: 20210628

REACTIONS (4)
  - Treatment failure [None]
  - Product solubility abnormal [None]
  - Dry mouth [None]
  - Drug level fluctuating [None]

NARRATIVE: CASE EVENT DATE: 20211026
